FAERS Safety Report 9916833 (Version 1)
Quarter: 2014Q1

REPORT INFORMATION
  Report Type: Spontaneous
  Country: IT (occurrence: IT)
  Receive Date: 20140221
  Receipt Date: 20140221
  Transmission Date: 20141002
  Serious: Yes (Other)
  Sender: FDA-Public Use
  Company Number: IT-ACTAVIS-2014-02698

PATIENT
  Age: 66 Year
  Sex: Female

DRUGS (2)
  1. PACLITAXEL (UNKNOWN) [Suspect]
     Indication: OVARIAN CANCER
     Dosage: 300 MG, CYCLICAL
     Route: 042
     Dates: start: 20131209, end: 20140127
  2. CARBOPLATIN TEVA [Suspect]
     Indication: OVARIAN CANCER
     Dosage: 515 MG, CYCLICAL
     Route: 042
     Dates: start: 20131209, end: 20140127

REACTIONS (3)
  - Neutropenia [Recovered/Resolved]
  - Leukopenia [Recovered/Resolved]
  - Anaemia [Recovered/Resolved]
